FAERS Safety Report 16949224 (Version 3)
Quarter: 2019Q4

REPORT INFORMATION
  Report Type: Report from Study
  Country: None (occurrence: US)
  Receive Date: 20191023
  Receipt Date: 20191128
  Transmission Date: 20200122
  Serious: Yes (Other)
  Sender: FDA-Public Use
  Company Number: US-ABBVIE-19K-163-2914756-00

PATIENT
  Age: 34 Year
  Sex: Female

DRUGS (2)
  1. HUMIRA [Suspect]
     Active Substance: ADALIMUMAB
     Indication: ANKYLOSING SPONDYLITIS
     Route: 058
     Dates: start: 20190815, end: 2019
  2. HUMIRA [Suspect]
     Active Substance: ADALIMUMAB
     Route: 058
     Dates: start: 2019

REACTIONS (21)
  - Haematochezia [Unknown]
  - Joint range of motion decreased [Not Recovered/Not Resolved]
  - Therapeutic response shortened [Unknown]
  - General physical condition abnormal [Recovering/Resolving]
  - Diarrhoea [Recovered/Resolved]
  - Back pain [Unknown]
  - Diarrhoea [Unknown]
  - Dyspnoea [Unknown]
  - Fatigue [Unknown]
  - Joint range of motion decreased [Recovering/Resolving]
  - Mobility decreased [Not Recovered/Not Resolved]
  - Discomfort [Recovering/Resolving]
  - Loss of personal independence in daily activities [Not Recovered/Not Resolved]
  - Arthralgia [Unknown]
  - Musculoskeletal stiffness [Not Recovered/Not Resolved]
  - General physical condition abnormal [Not Recovered/Not Resolved]
  - Ankylosing spondylitis [Recovering/Resolving]
  - Intestinal haemorrhage [Unknown]
  - Tremor [Unknown]
  - Dysstasia [Not Recovered/Not Resolved]
  - Neck pain [Unknown]

NARRATIVE: CASE EVENT DATE: 2019
